FAERS Safety Report 5033563-6 (Version None)
Quarter: 2006Q2

REPORT INFORMATION
  Report Type: 
  Country: None (occurrence: None)
  Receive Date: 20060623
  Receipt Date: 20050810
  Transmission Date: 20061013
  Serious: Yes (Hospitalization)
  Sender: FDA-Public Use
  Company Number: US-ROCHE-413949

PATIENT
  Age: 60 Year
  Sex: Male

DRUGS (4)
  1. PEGASYS [Suspect]
     Route: 058
     Dates: start: 20050519, end: 20050720
  2. PEGASYS [Suspect]
     Route: 058
     Dates: start: 20050826
  3. COPEGUS [Suspect]
     Route: 048
     Dates: start: 20050519, end: 20050720
  4. COPEGUS [Suspect]
     Route: 048
     Dates: start: 20050826

REACTIONS (10)
  - ANAEMIA [None]
  - ANXIETY [None]
  - ASTHENIA [None]
  - DEHYDRATION [None]
  - DYSPNOEA [None]
  - FALL [None]
  - FATIGUE [None]
  - ILL-DEFINED DISORDER [None]
  - PAIN [None]
  - TINNITUS [None]
